FAERS Safety Report 5703666-9 (Version None)
Quarter: 2008Q2

REPORT INFORMATION
  Report Type: 
  Country: None (occurrence: None)
  Receive Date: 20080413
  Receipt Date: 20080403
  Transmission Date: 20081010
  Serious: Yes (Hospitalization)
  Sender: FDA-Public Use
  Company Number: PHHY2008IT04515

PATIENT
  Age: 81 Year
  Sex: Female

DRUGS (3)
  1. ZOMETA [Suspect]
     Indication: BREAST CANCER
     Dosage: 4 MG, QMO
     Route: 042
     Dates: start: 20051101, end: 20071101
  2. CYCLOPHOSPHAMIDE [Concomitant]
  3. METOTREXOL [Concomitant]

REACTIONS (2)
  - DENTAL OPERATION [None]
  - OSTEOMYELITIS [None]
